FAERS Safety Report 21305927 (Version 10)
Quarter: 2023Q2

REPORT INFORMATION
  Report Type: Report from Study
  Country: CN (occurrence: None)
  Receive Date: 20220908
  Receipt Date: 20230626
  Transmission Date: 20230722
  Serious: Yes (Hospitalization)
  Sender: FDA-Public Use
  Company Number: CN-ROCHE-3173605

PATIENT
  Age: 62 Year
  Sex: Female
  Weight: 61 kg

DRUGS (59)
  1. RITUXIMAB [Suspect]
     Active Substance: RITUXIMAB
     Indication: Non-Hodgkin^s lymphoma unspecified histology indolent
     Dosage: ON 27/JUL/2022, 12:50 PM, SHE RECEIVED MOST RECENT DOSE 600 MG OF STUDY DRUG RITUXIMAB PRIOR TO SAE/
     Route: 041
     Dates: start: 20220706
  2. LENALIDOMIDE [Suspect]
     Active Substance: LENALIDOMIDE
     Indication: Non-Hodgkin^s lymphoma unspecified histology indolent
     Dosage: DOSE LAST STUDY DRUG ADMIN PRIOR AE/SAE 15 MG?START DATE OF MOST RECENT DOSE OF STUDY DRUG PRIOR AE/
     Route: 048
     Dates: start: 20220706
  3. RESERPINE [Concomitant]
     Active Substance: RESERPINE
     Route: 048
     Dates: start: 2021
  4. RESERPINE [Concomitant]
     Active Substance: RESERPINE
     Route: 048
     Dates: start: 202302
  5. EUTHYROX [Concomitant]
     Active Substance: LEVOTHYROXINE SODIUM
     Indication: Hypothyroidism
     Route: 048
     Dates: start: 2021
  6. HMPL-523 [Concomitant]
     Active Substance: HMPL-523
     Indication: Neoplasm malignant
     Dates: start: 20170524
  7. EBASTINE [Concomitant]
     Active Substance: EBASTINE
     Indication: Hypersensitivity
     Route: 048
     Dates: start: 20220901, end: 20220909
  8. EBASTINE [Concomitant]
     Active Substance: EBASTINE
     Route: 048
     Dates: start: 20220909, end: 20220910
  9. CALCIUM CARBONATE\CHOLECALCIFEROL [Concomitant]
     Active Substance: CALCIUM CARBONATE\CHOLECALCIFEROL
     Dosage: DOSE - 1 TABLET
     Route: 048
     Dates: start: 20220901, end: 20220909
  10. OMEPRAZOLE [Concomitant]
     Active Substance: OMEPRAZOLE
     Route: 048
     Dates: start: 20220901, end: 20221122
  11. POTASSIUM CITRATE [Concomitant]
     Active Substance: POTASSIUM CITRATE
     Indication: Prophylaxis
     Route: 048
     Dates: start: 20220831, end: 20220831
  12. POTASSIUM CITRATE [Concomitant]
     Active Substance: POTASSIUM CITRATE
     Route: 048
     Dates: start: 20220906, end: 20220906
  13. POTASSIUM CITRATE [Concomitant]
     Active Substance: POTASSIUM CITRATE
     Route: 048
     Dates: start: 20220907, end: 20220907
  14. POTASSIUM CITRATE [Concomitant]
     Active Substance: POTASSIUM CITRATE
     Route: 048
     Dates: start: 20220907, end: 20220909
  15. POTASSIUM CITRATE [Concomitant]
     Active Substance: POTASSIUM CITRATE
     Dosage: SUBSEQUENT DOSE 2G OF POTASSIUM CITRATE ON SAME DAY.
     Route: 048
     Dates: start: 20221027, end: 20221028
  16. POTASSIUM CITRATE [Concomitant]
     Active Substance: POTASSIUM CITRATE
     Route: 048
     Dates: start: 20221027, end: 20221027
  17. POTASSIUM CITRATE [Concomitant]
     Active Substance: POTASSIUM CITRATE
     Dosage: 1 OTHER
     Route: 048
     Dates: start: 20220909, end: 20220915
  18. POTASSIUM CITRATE [Concomitant]
     Active Substance: POTASSIUM CITRATE
     Route: 048
     Dates: start: 20220906, end: 20220906
  19. LEVOFLOXACIN HYDROCHLORIDE [Concomitant]
     Active Substance: LEVOFLOXACIN HYDROCHLORIDE
     Indication: Prophylaxis
     Route: 042
     Dates: start: 20220831, end: 20220909
  20. LEVOFLOXACIN HYDROCHLORIDE [Concomitant]
     Active Substance: LEVOFLOXACIN HYDROCHLORIDE
     Indication: Infection
  21. METHYLPREDNISOLONE SODIUM SUCCINATE [Concomitant]
     Active Substance: METHYLPREDNISOLONE SODIUM SUCCINATE
     Route: 042
     Dates: start: 20220901, end: 20220909
  22. LIDOCAINE HYDROCHLORIDE [Concomitant]
     Active Substance: LIDOCAINE HYDROCHLORIDE
     Indication: Local anaesthesia
     Dates: start: 20220901, end: 20220901
  23. LIDOCAINE HYDROCHLORIDE [Concomitant]
     Active Substance: LIDOCAINE HYDROCHLORIDE
     Route: 058
     Dates: start: 20221027, end: 20221027
  24. LIDOCAINE HYDROCHLORIDE [Concomitant]
     Active Substance: LIDOCAINE HYDROCHLORIDE
     Route: 058
     Dates: start: 20230421, end: 20230421
  25. CODEINE PHOSPHATE [Concomitant]
     Active Substance: CODEINE PHOSPHATE
     Route: 048
     Dates: start: 20220901, end: 20220901
  26. MIDAZOLAM [Concomitant]
     Active Substance: MIDAZOLAM
     Route: 042
     Dates: start: 20220901, end: 20220901
  27. SUFENTANIL CITRATE [Concomitant]
     Active Substance: SUFENTANIL CITRATE
     Route: 042
     Dates: start: 20220901, end: 20220901
  28. ESTAZOLAM [Concomitant]
     Active Substance: ESTAZOLAM
     Route: 048
     Dates: start: 20220907, end: 20220907
  29. ESTAZOLAM [Concomitant]
     Active Substance: ESTAZOLAM
     Route: 048
     Dates: start: 20230423, end: 20230423
  30. METHYLPREDNISOLONE [Concomitant]
     Active Substance: METHYLPREDNISOLONE
     Route: 048
     Dates: start: 20220928, end: 20221004
  31. METHYLPREDNISOLONE [Concomitant]
     Active Substance: METHYLPREDNISOLONE
     Route: 048
     Dates: start: 20220909, end: 20220927
  32. METHYLPREDNISOLONE [Concomitant]
     Active Substance: METHYLPREDNISOLONE
     Dosage: 6 TABLETS
     Route: 048
     Dates: start: 20221005, end: 20221011
  33. METHYLPREDNISOLONE [Concomitant]
     Active Substance: METHYLPREDNISOLONE
     Dosage: 5 TABLETS
     Route: 048
     Dates: start: 20221012, end: 20221018
  34. METHYLPREDNISOLONE [Concomitant]
     Active Substance: METHYLPREDNISOLONE
     Dosage: 4 TABLETS
     Route: 048
     Dates: start: 20221019, end: 20221025
  35. METHYLPREDNISOLONE [Concomitant]
     Active Substance: METHYLPREDNISOLONE
     Dosage: 3.5 TABLETS
     Route: 048
     Dates: start: 20221026, end: 20221101
  36. METHYLPREDNISOLONE [Concomitant]
     Active Substance: METHYLPREDNISOLONE
     Route: 048
     Dates: start: 20221102, end: 20221104
  37. METHYLPREDNISOLONE [Concomitant]
     Active Substance: METHYLPREDNISOLONE
     Route: 048
     Dates: start: 20221105, end: 20221108
  38. METHYLPREDNISOLONE [Concomitant]
     Active Substance: METHYLPREDNISOLONE
     Route: 048
     Dates: start: 20221109, end: 20221115
  39. METHYLPREDNISOLONE [Concomitant]
     Active Substance: METHYLPREDNISOLONE
     Route: 048
     Dates: start: 20221116, end: 20221122
  40. METHYLPREDNISOLONE [Concomitant]
     Active Substance: METHYLPREDNISOLONE
     Route: 042
     Dates: start: 20220901, end: 20220909
  41. MOXIFLOXACIN HYDROCHLORIDE [Concomitant]
     Active Substance: MOXIFLOXACIN HYDROCHLORIDE
     Indication: Infection
     Dosage: UNKNOWN
     Route: 042
     Dates: start: 20221027
  42. MOXIFLOXACIN HYDROCHLORIDE [Concomitant]
     Active Substance: MOXIFLOXACIN HYDROCHLORIDE
     Route: 042
     Dates: start: 20221026, end: 20221027
  43. MOXIFLOXACIN HYDROCHLORIDE [Concomitant]
     Active Substance: MOXIFLOXACIN HYDROCHLORIDE
     Route: 042
     Dates: start: 20230422, end: 20230425
  44. MOXIFLOXACIN HYDROCHLORIDE [Concomitant]
     Active Substance: MOXIFLOXACIN HYDROCHLORIDE
     Indication: Infection
     Route: 048
     Dates: start: 20221102, end: 20221109
  45. IRBESARTAN AND HYDROCHLOROTHIAZIDE [Concomitant]
     Active Substance: HYDROCHLOROTHIAZIDE\IRBESARTAN
     Indication: Hypertension
     Dosage: 1 TABLETS
     Route: 048
     Dates: start: 20221031, end: 20221031
  46. IRBESARTAN AND HYDROCHLOROTHIAZIDE [Concomitant]
     Active Substance: HYDROCHLOROTHIAZIDE\IRBESARTAN
     Dosage: 0.5 TABLETS
     Route: 048
     Dates: start: 20221103, end: 20221103
  47. IRBESARTAN AND HYDROCHLOROTHIAZIDE [Concomitant]
     Active Substance: HYDROCHLOROTHIAZIDE\IRBESARTAN
     Route: 048
     Dates: start: 20221027, end: 20221027
  48. ACETYLCISTEINE [Concomitant]
     Route: 045
     Dates: start: 20221026, end: 20221101
  49. ACETYLCISTEINE [Concomitant]
     Route: 045
     Dates: start: 20220831, end: 20220909
  50. ERTAPENEM SODIUM [Concomitant]
     Active Substance: ERTAPENEM SODIUM
     Route: 042
     Dates: start: 20221026, end: 20221101
  51. ERTAPENEM SODIUM [Concomitant]
     Active Substance: ERTAPENEM SODIUM
     Route: 042
     Dates: start: 20221027, end: 20221101
  52. POTASSIUM CHLORIDE [Concomitant]
     Active Substance: POTASSIUM CHLORIDE
     Indication: Prophylaxis
     Route: 048
     Dates: start: 20221027, end: 20221027
  53. POTASSIUM CHLORIDE [Concomitant]
     Active Substance: POTASSIUM CHLORIDE
     Route: 048
     Dates: start: 20230425, end: 20230430
  54. CARBAZOCHROME SODIUM SULFONATE [Concomitant]
     Active Substance: CARBAZOCHROME SODIUM SULFONATE
     Indication: Haemorrhage
     Route: 042
     Dates: start: 20221027, end: 20221028
  55. DEXTROMETHORPHAN HYDROBROMIDE [Concomitant]
     Active Substance: DEXTROMETHORPHAN HYDROBROMIDE
     Indication: Cough
     Route: 048
     Dates: start: 20221215, end: 20221218
  56. ACETYLCYSTEINE [Concomitant]
     Active Substance: ACETYLCYSTEINE
     Dosage: SOLUTION FOR INHALATION
     Route: 055
     Dates: start: 20220831, end: 20220909
  57. CARBOCYSTEINE [Concomitant]
     Active Substance: CARBOCYSTEINE
     Dosage: ORAL SOLUTION
     Route: 048
     Dates: start: 20221102, end: 20221103
  58. CARBOCYSTEINE [Concomitant]
     Active Substance: CARBOCYSTEINE
     Dosage: ORAL SOLUTION
     Route: 048
     Dates: start: 20230422, end: 20230422
  59. COMPOUND LIQUORICE [Concomitant]
     Route: 048
     Dates: start: 20230323, end: 20230329

REACTIONS (3)
  - Pulmonary mass [Not Recovered/Not Resolved]
  - Interstitial lung disease [Recovered/Resolved]
  - Pneumonia bacterial [Recovered/Resolved]

NARRATIVE: CASE EVENT DATE: 20220831
